FAERS Safety Report 7731926-9 (Version None)
Quarter: 2011Q3

REPORT INFORMATION
  Report Type: 
  Country: None (occurrence: None)
  Receive Date: 20110906
  Receipt Date: 20110823
  Transmission Date: 20111222
  Serious: Yes (Life-Threatening, Hospitalization, Disabling)
  Sender: FDA-Public Use
  Company Number: GB-MYLANLABS-2011S1017513

PATIENT
  Age: 63 Year
  Sex: Female
  Weight: 64 kg

DRUGS (15)
  1. DOTHIEPIN HYDROCHLORIDE [Concomitant]
     Indication: DEPRESSION
     Route: 048
  2. KLIOVANCE [Concomitant]
     Indication: PRODUCT USED FOR UNKNOWN INDICATION
     Dates: end: 20110424
  3. PIPERACILLIN AND TAZOBACTAM [Concomitant]
     Indication: PNEUMONIA
     Route: 042
     Dates: start: 20110424, end: 20110425
  4. HYOSCINE [Concomitant]
     Indication: PRODUCT USED FOR UNKNOWN INDICATION
  5. LEVETIRACETAM [Concomitant]
     Indication: PRODUCT USED FOR UNKNOWN INDICATION
     Route: 048
  6. AUGMENTIN '125' [Concomitant]
     Indication: PRODUCT USED FOR UNKNOWN INDICATION
     Route: 042
     Dates: start: 20110423, end: 20110423
  7. MOXONIDINE [Concomitant]
     Indication: HYPERTENSION
     Route: 048
  8. LEVOTHYROXINE SODIUM [Concomitant]
     Indication: PRODUCT USED FOR UNKNOWN INDICATION
  9. CYCLOSPORINE [Interacting]
     Indication: RENAL TRANSPLANT
     Route: 048
     Dates: end: 20110426
  10. ACETAMINOPHEN [Concomitant]
     Indication: PRODUCT USED FOR UNKNOWN INDICATION
     Route: 048
  11. CLARITHROMYCIN [Suspect]
     Indication: PNEUMONIA
     Dates: start: 20110423, end: 20110428
  12. COLCHICINE [Interacting]
     Indication: GOUT
     Route: 048
     Dates: start: 20110224, end: 20110424
  13. ALLOPURINOL [Concomitant]
     Indication: GOUT
     Route: 048
  14. ATENOLOL [Concomitant]
     Indication: HYPERTENSION
     Route: 048
  15. METRONIDAZOLE [Concomitant]
     Indication: GASTROINTESTINAL INFECTION
     Route: 042
     Dates: start: 20110423, end: 20110424

REACTIONS (8)
  - DRUG INTERACTION [None]
  - BLOOD CALCIUM DECREASED [None]
  - BLOOD CREATINE PHOSPHOKINASE INCREASED [None]
  - METABOLIC ACIDOSIS [None]
  - PANCYTOPENIA [None]
  - RENAL FAILURE ACUTE [None]
  - NEUROPATHY PERIPHERAL [None]
  - GUILLAIN-BARRE SYNDROME [None]
